FAERS Safety Report 22355940 (Version 1)
Quarter: 2023Q2

REPORT INFORMATION
  Report Type: Spontaneous
  Country: US (occurrence: US)
  Receive Date: 20230523
  Receipt Date: 20230523
  Transmission Date: 20230721
  Serious: Yes (Other)
  Sender: FDA-Public Use
  Company Number: US-BRISTOL-MYERS SQUIBB COMPANY-2023-069163

PATIENT
  Age: 72 Year
  Sex: Male

DRUGS (1)
  1. LENALIDOMIDE [Suspect]
     Active Substance: LENALIDOMIDE
     Indication: Bone marrow transplant
     Dosage: TAKE 1 CAPSULE BY MOUTH EVERY MORNING FOR 21 ?DAYS THEN OFF FOR 7 DAYS
     Route: 048

REACTIONS (1)
  - Tooth disorder [Recovered/Resolved]
